FAERS Safety Report 21007075 (Version 3)
Quarter: 2022Q3

REPORT INFORMATION
  Report Type: Report from Study
  Country: US (occurrence: US)
  Receive Date: 20220625
  Receipt Date: 20220701
  Transmission Date: 20221027
  Serious: No
  Sender: FDA-Public Use
  Company Number: US-NOVARTISTESTPH-NVSC2022US138638

PATIENT
  Sex: Female

DRUGS (1)
  1. COSENTYX [Suspect]
     Active Substance: SECUKINUMAB
     Indication: Product used for unknown indication
     Dosage: UNK
     Route: 065

REACTIONS (8)
  - Psoriasis [Unknown]
  - Skin haemorrhage [Unknown]
  - Skin infection [Unknown]
  - Wound [Unknown]
  - Arthritis [Unknown]
  - Normal newborn [Unknown]
  - Maternal exposure timing unspecified [Unknown]
  - Product dose omission issue [Unknown]
